FAERS Safety Report 22631054 (Version 5)
Quarter: 2023Q4

REPORT INFORMATION
  Report Type: Report from Study
  Country: US (occurrence: US)
  Receive Date: 20230622
  Receipt Date: 20231129
  Transmission Date: 20240110
  Serious: Yes (Hospitalization, Other)
  Sender: FDA-Public Use
  Company Number: US-ACADIA PHARMACEUTICALS INC.-ACA-2023-TRF-002110

PATIENT
  Age: 2 Year
  Sex: Female

DRUGS (3)
  1. DAYBUE [Suspect]
     Active Substance: TROFINETIDE
     Indication: Rett syndrome
     Dosage: 10 MILLILITER, BID
     Route: 048
     Dates: start: 20230523
  2. DAYBUE [Suspect]
     Active Substance: TROFINETIDE
     Dosage: 30 MILLILITER, BID
     Route: 048
     Dates: end: 20231031
  3. DAYBUE [Suspect]
     Active Substance: TROFINETIDE
     Dosage: 30 MILLILITER, BID
     Route: 048
     Dates: start: 20231102, end: 20231102

REACTIONS (9)
  - Encephalopathy [Recovered/Resolved]
  - Unresponsive to stimuli [Not Recovered/Not Resolved]
  - Seizure [Not Recovered/Not Resolved]
  - Seizure [Not Recovered/Not Resolved]
  - Harlequin syndrome [Not Recovered/Not Resolved]
  - Cough [Not Recovered/Not Resolved]
  - Nasal congestion [Not Recovered/Not Resolved]
  - Underdose [Recovered/Resolved]
  - Nasopharyngitis [Recovered/Resolved]

NARRATIVE: CASE EVENT DATE: 20230523
